FAERS Safety Report 10891481 (Version 2)
Quarter: 2015Q2

REPORT INFORMATION
  Report Type: Report from Study
  Country: RS (occurrence: RS)
  Receive Date: 20150306
  Receipt Date: 20150401
  Transmission Date: 20150821
  Serious: Yes (Hospitalization, Other)
  Sender: FDA-Public Use
  Company Number: RS-BIOGENIDEC-2015BI028362

PATIENT
  Age: 29 Year
  Sex: Female
  Weight: 71 kg

DRUGS (5)
  1. AVONEX [Suspect]
     Active Substance: INTERFERON BETA-1A
     Indication: MULTIPLE SCLEROSIS
     Route: 030
     Dates: start: 20140730
  2. BRUFEN [Concomitant]
     Active Substance: IBUPROFEN
     Indication: PROPHYLAXIS
     Route: 048
     Dates: start: 20140730
  3. BLINDED THERAPY [Concomitant]
     Active Substance: INVESTIGATIONAL PRODUCT
     Indication: MULTIPLE SCLEROSIS
     Route: 042
     Dates: start: 20140730
  4. BRUFEN [Concomitant]
     Active Substance: IBUPROFEN
     Route: 048
     Dates: start: 20140730
  5. VITAMIN D [Concomitant]
     Active Substance: CHOLECALCIFEROL
     Indication: SUPPLEMENTATION THERAPY
     Route: 048
     Dates: start: 20140524

REACTIONS (1)
  - Urinary tract infection [Recovered/Resolved]

NARRATIVE: CASE EVENT DATE: 20150301
